FAERS Safety Report 15115100 (Version 1)
Quarter: 2018Q3

REPORT INFORMATION
  Report Type: Report from Study
  Country: US (occurrence: US)
  Receive Date: 20180706
  Receipt Date: 20180706
  Transmission Date: 20181010
  Serious: Yes (Death, Hospitalization)
  Sender: FDA-Public Use
  Company Number: US-ASTELLAS-2018US030317

PATIENT
  Age: 65 Year
  Sex: Female

DRUGS (2)
  1. ERLOTINIB [Suspect]
     Active Substance: ERLOTINIB
     Indication: NEOPLASM MALIGNANT
     Dosage: UNK, UNKNOWN FREQ.
     Route: 065
  2. ERLOTINIB [Suspect]
     Active Substance: ERLOTINIB
     Route: 048
     Dates: start: 20180511

REACTIONS (5)
  - Death [Fatal]
  - Dyspnoea [Unknown]
  - Vomiting [Unknown]
  - Nausea [Unknown]
  - Pneumonia [Unknown]

NARRATIVE: CASE EVENT DATE: 20180701
